FAERS Safety Report 10013474 (Version 2)
Quarter: 2014Q2

REPORT INFORMATION
  Report Type: Spontaneous
  Country: GB (occurrence: GB)
  Receive Date: 20140314
  Receipt Date: 20140522
  Transmission Date: 20141212
  Serious: Yes (Death)
  Sender: FDA-Public Use
  Company Number: GB-B.I. PHARMACEUTICALS,INC./RIDGEFIELD-2014-BI-11159UK

PATIENT
  Age: 93 Year
  Sex: Female
  Weight: 46 kg

DRUGS (8)
  1. PRADAXA [Suspect]
     Indication: ATRIAL FIBRILLATION
     Dosage: 220 MG
     Route: 048
     Dates: start: 201307, end: 201401
  2. ALENDRONIC ACID [Concomitant]
     Route: 065
  3. BISOPROLOL [Concomitant]
     Route: 065
  4. CODEINE [Concomitant]
     Route: 065
  5. DIGOXIN [Concomitant]
     Route: 065
  6. ISOSORBIDE MONONITRATE [Concomitant]
     Route: 065
  7. RANITIDINE [Concomitant]
     Route: 065
  8. THYROXINE [Concomitant]
     Route: 065

REACTIONS (1)
  - Gastrointestinal haemorrhage [Fatal]
